FAERS Safety Report 4489814-X (Version None)
Quarter: 2004Q4

REPORT INFORMATION
  Report Type: 
  Country: None (occurrence: None)
  Receive Date: 20041101
  Receipt Date: 20041019
  Transmission Date: 20050328
  Serious: Yes (Life-Threatening)
  Sender: FDA-Public Use
  Company Number: US-MERCK-0410USA02926

PATIENT
  Sex: Male

DRUGS (2)
  1. VIOXX [Suspect]
     Route: 048
     Dates: start: 20010101, end: 20041016
  2. TIAZAC [Concomitant]
     Route: 065

REACTIONS (4)
  - HEADACHE [None]
  - HYPERTENSION [None]
  - NAUSEA [None]
  - RASH [None]
